FAERS Safety Report 12569427 (Version 2)
Quarter: 2016Q3

REPORT INFORMATION
  Report Type: Spontaneous
  Country: US (occurrence: US)
  Receive Date: 20160719
  Receipt Date: 20160922
  Transmission Date: 20161109
  Serious: Yes (Other)
  Sender: FDA-Public Use
  Company Number: US-PFIZER INC-2016328762

PATIENT
  Age: 10 Year
  Sex: Male
  Weight: 27.66 kg

DRUGS (1)
  1. QUILLIVANT XR [Suspect]
     Active Substance: METHYLPHENIDATE HYDROCHLORIDE
     Indication: ATTENTION DEFICIT/HYPERACTIVITY DISORDER
     Dosage: 3 ML, DAILY
     Route: 048
     Dates: start: 201505, end: 201606

REACTIONS (6)
  - Cough [Unknown]
  - Growth retardation [Unknown]
  - Liver function test increased [Recovered/Resolved]
  - Haematuria [Not Recovered/Not Resolved]
  - Lung disorder [Unknown]
  - Blood urine [Not Recovered/Not Resolved]

NARRATIVE: CASE EVENT DATE: 201606
